FAERS Safety Report 5858506-4 (Version None)
Quarter: 2008Q3

REPORT INFORMATION
  Report Type: 
  Country: None (occurrence: None)
  Receive Date: 20080826
  Receipt Date: 20080818
  Transmission Date: 20090109
  Serious: Yes (Disabling)
  Sender: FDA-Public Use
  Company Number: FR-PFIZER INC-2008055394

PATIENT
  Sex: Female
  Weight: 48 kg

DRUGS (6)
  1. CHANTIX [Suspect]
     Indication: SMOKING CESSATION THERAPY
     Route: 048
  2. TRAMADOL HCL [Concomitant]
     Dosage: TEXT:1-2 TABLETS
     Route: 048
  3. ART 50 [Concomitant]
     Indication: OSTEOARTHRITIS
     Route: 048
  4. ACECLOFENAC [Concomitant]
     Indication: OSTEOARTHRITIS
     Route: 048
  5. PANTOPRAZOLE [Concomitant]
     Indication: PROPHYLAXIS
     Route: 048
  6. ACETAMINOPHEN [Concomitant]
     Indication: PAIN
     Dosage: TEXT:1-2 TABLETS
     Route: 048

REACTIONS (7)
  - DYSPHAGIA [None]
  - FUNGAL INFECTION [None]
  - GLOSSITIS [None]
  - GLOSSODYNIA [None]
  - INSOMNIA [None]
  - TONGUE DISCOLOURATION [None]
  - TONGUE DISORDER [None]
